FAERS Safety Report 13069707 (Version 4)
Quarter: 2017Q1

REPORT INFORMATION
  Report Type: Spontaneous
  Country: JP (occurrence: JP)
  Receive Date: 20161228
  Receipt Date: 20170228
  Transmission Date: 20170428
  Serious: Yes (Life-Threatening)
  Sender: FDA-Public Use
  Company Number: JP-MALLINCKRODT-T201606723

PATIENT
  Age: 82 Year
  Sex: Male
  Weight: 61 kg

DRUGS (11)
  1. OXINORM [Concomitant]
     Active Substance: OXYCODONE HYDROCHLORIDE
     Indication: PAIN
     Dosage: UNK
     Route: 048
     Dates: start: 20161210, end: 20161212
  2. OFIRMEV [Suspect]
     Active Substance: ACETAMINOPHEN
     Indication: PAIN MANAGEMENT
     Dosage: 1000 MG
     Route: 042
     Dates: start: 20161212, end: 20161214
  3. WYSTAL [Concomitant]
     Active Substance: CEFOPERAZONE SODIUM\SULBACTAM SODIUM
     Indication: INFECTION PROPHYLAXIS
     Dosage: 2 G
     Route: 041
     Dates: start: 20161208, end: 20161214
  4. FULCALIQ [Concomitant]
     Active Substance: AMINO ACIDS\CARBOHYDRATES\ELECTROLYTES NOS\VITAMINS
     Indication: FLUID RETENTION
     Dosage: 903 ML
     Route: 041
     Dates: start: 20161213, end: 20161214
  5. OXYCONTIN [Concomitant]
     Active Substance: OXYCODONE HYDROCHLORIDE
     Indication: PAIN
     Dosage: 10 MG
     Route: 048
     Dates: start: 20161210, end: 20161212
  6. BFLUID [Concomitant]
     Active Substance: AMINO ACIDS\DEXTROSE\ELECTROLYTES NOS\VITAMINS
     Indication: FLUID REPLACEMENT
     Dosage: 500 ML
     Route: 042
     Dates: start: 20161209, end: 20161213
  7. ROPION [Concomitant]
     Active Substance: FLURBIPROFEN AXETIL
     Indication: PAIN
     Dosage: 50 MG
     Route: 041
     Dates: start: 20161206, end: 20161214
  8. ABSTRAL [Concomitant]
     Active Substance: FENTANYL CITRATE
     Indication: PAIN
     Dosage: 100 ?G
     Route: 060
     Dates: start: 20161214, end: 20161219
  9. RED BLOOD CELLS, CONCENTRATED [Concomitant]
     Active Substance: HUMAN RED BLOOD CELL
     Indication: PACKED RED BLOOD CELL TRANSFUSION
     Dosage: 4 DF, INTRAVENOUS (NOT OTHERWISE SPECIFIED) PACKED RED BLOOD CELL TRANSFUSION
     Route: 042
     Dates: start: 20161208, end: 20161208
  10. FENTOS [Concomitant]
     Active Substance: FENTANYL
     Indication: PAIN
     Dosage: UNK
     Route: 062
     Dates: start: 20161213, end: 20161222
  11. LACTEC D [Concomitant]
     Indication: FLUID REPLACEMENT
     Dosage: 500 ML
     Route: 041
     Dates: start: 20161205, end: 20161222

REACTIONS (1)
  - Hypoglycaemia [Recovered/Resolved]

NARRATIVE: CASE EVENT DATE: 20161213
